FAERS Safety Report 21422897 (Version 3)
Quarter: 2022Q4

REPORT INFORMATION
  Report Type: Spontaneous
  Country: None (occurrence: US)
  Receive Date: 20221007
  Receipt Date: 20221121
  Transmission Date: 20230113
  Serious: No
  Sender: FDA-Public Use
  Company Number: US-Innogenix, LLC-2133563

PATIENT
  Age: 53 Year
  Sex: Male

DRUGS (1)
  1. CAPTOPRIL [Suspect]
     Active Substance: CAPTOPRIL
     Indication: Nephrolithiasis
     Route: 065
     Dates: start: 2022, end: 2022

REACTIONS (3)
  - Product odour abnormal [Unknown]
  - Product substitution issue [Unknown]
  - Off label use [Unknown]

NARRATIVE: CASE EVENT DATE: 20220101
